FAERS Safety Report 7782215-8 (Version None)
Quarter: 2011Q3

REPORT INFORMATION
  Report Type: 
  Country: None (occurrence: None)
  Receive Date: 20110927
  Receipt Date: 20110923
  Transmission Date: 20111222
  Serious: Yes (Other)
  Sender: FDA-Public Use
  Company Number: BR-PFIZER INC-2011227058

PATIENT
  Age: 61 Year
  Sex: Female

DRUGS (1)
  1. ALPRAZOLAM [Suspect]
     Dosage: 1 MG (ONE TABLET), 2X/DAY
     Route: 048

REACTIONS (2)
  - REACTION TO AZO-DYES [None]
  - LARYNGEAL OEDEMA [None]
